FAERS Safety Report 25048818 (Version 1)
Quarter: 2025Q1

REPORT INFORMATION
  Report Type: Spontaneous
  Country: TN (occurrence: TN)
  Receive Date: 20250307
  Receipt Date: 20250307
  Transmission Date: 20250409
  Serious: Yes (Other)
  Sender: NOVITIUM PHARMA
  Company Number: TN-NOVITIUMPHARMA-2025TNNVP00528

PATIENT
  Age: 36 Year
  Sex: Male

DRUGS (21)
  1. PREDNISONE [Suspect]
     Active Substance: PREDNISONE
     Indication: Acute leukaemia
  2. CYCLOPHOSPHAMIDE [Concomitant]
     Active Substance: CYCLOPHOSPHAMIDE
  3. CYCLOPHOSPHAMIDE [Concomitant]
     Active Substance: CYCLOPHOSPHAMIDE
  4. BUSULFAN [Concomitant]
     Active Substance: BUSULFAN
  5. VINCRISTINE [Concomitant]
     Active Substance: VINCRISTINE
  6. DAUNORUBICIN [Concomitant]
     Active Substance: DAUNORUBICIN
  7. ASPARAGINASE [Concomitant]
     Active Substance: ASPARAGINASE
  8. METHOTREXATE [Concomitant]
     Active Substance: METHOTREXATE
  9. IDARUBICIN [Concomitant]
     Active Substance: IDARUBICIN
  10. CYTARABINE [Concomitant]
     Active Substance: CYTARABINE
  11. LENOGRASTIM [Concomitant]
     Active Substance: LENOGRASTIM
  12. DEXAMETHASONE [Concomitant]
     Active Substance: DEXAMETHASONE
  13. CYCLOSPORINE [Concomitant]
     Active Substance: CYCLOSPORINE
  14. MELPHALAN [Concomitant]
     Active Substance: MELPHALAN
  15. METHYLPREDNISOLONE [Concomitant]
     Active Substance: METHYLPREDNISOLONE
  16. AZACITIDINE [Concomitant]
     Active Substance: AZACITIDINE
     Dates: start: 202112
  17. VENETOCLAX [Concomitant]
     Active Substance: VENETOCLAX
  18. VENETOCLAX [Concomitant]
     Active Substance: VENETOCLAX
  19. VENETOCLAX [Concomitant]
     Active Substance: VENETOCLAX
  20. VENETOCLAX [Concomitant]
     Active Substance: VENETOCLAX
  21. IMIPENEM [Concomitant]
     Active Substance: IMIPENEM

REACTIONS (1)
  - Bronchopulmonary aspergillosis [Recovered/Resolved]
